FAERS Safety Report 16759695 (Version 1)
Quarter: 2019Q3

REPORT INFORMATION
  Report Type: Spontaneous
  Country: JP (occurrence: JP)
  Receive Date: 20190830
  Receipt Date: 20190830
  Transmission Date: 20191005
  Serious: Yes (Other)
  Sender: FDA-Public Use
  Company Number: JP-PFIZER INC-2019301695

PATIENT
  Age: 55 Year
  Sex: Female

DRUGS (10)
  1. PITAVASTATIN CALCIUM [Concomitant]
     Active Substance: PITAVASTATIN CALCIUM
     Dosage: UNK
     Route: 048
  2. GLACTIV [Concomitant]
     Active Substance: SITAGLIPTIN
     Dosage: UNK
     Route: 048
  3. METFORMIN [Concomitant]
     Active Substance: METFORMIN HYDROCHLORIDE
     Dosage: UNK
     Route: 048
  4. DENOTAS [Concomitant]
     Active Substance: CALCIUM CARBONATE\CHOLECALCIFEROL\MAGNESIUM CARBONATE
     Dosage: UNK
     Route: 048
  5. FASLODEX [Concomitant]
     Active Substance: FULVESTRANT
     Indication: BREAST CANCER
  6. RANMARK [Concomitant]
     Active Substance: DENOSUMAB
     Dosage: UNK
     Route: 058
  7. EPINASTINE HYDROCHLORIDE. [Concomitant]
     Active Substance: EPINASTINE HYDROCHLORIDE
     Dosage: UNK
     Route: 048
  8. IBRANCE [Suspect]
     Active Substance: PALBOCICLIB
     Indication: BREAST CANCER FEMALE
     Dosage: 100 MG, DAILY
     Route: 048
     Dates: start: 20190711, end: 2019
  9. FASLODEX [Concomitant]
     Active Substance: FULVESTRANT
     Indication: THERAPEUTIC PROCEDURE
     Dosage: UNK
     Route: 030
  10. IBRANCE [Suspect]
     Active Substance: PALBOCICLIB
     Indication: THERAPEUTIC PROCEDURE
     Dosage: 125 MG, DAILY
     Route: 048
     Dates: start: 20190621, end: 20190703

REACTIONS (9)
  - Angular cheilitis [Not Recovered/Not Resolved]
  - Cholecystitis [Unknown]
  - Hepatic function abnormal [Unknown]
  - Fatigue [Recovering/Resolving]
  - Malaise [Unknown]
  - White blood cell count decreased [Unknown]
  - Stomatitis [Unknown]
  - Pyrexia [Unknown]
  - Decreased appetite [Recovered/Resolved]

NARRATIVE: CASE EVENT DATE: 201907
